FAERS Safety Report 5018757-8 (Version None)
Quarter: 2006Q2

REPORT INFORMATION
  Report Type: 
  Country: None (occurrence: None)
  Receive Date: 20060525
  Receipt Date: 20060517
  Transmission Date: 20061013
  Serious: Yes (Other)
  Sender: FDA-Public Use
  Company Number: CHPA2006US04908

PATIENT
  Age: 60 Year
  Sex: Male
  Weight: 124.7 kg

DRUGS (1)
  1. 4 WAY FAST ACTING NASAL SPRAY (NCH) (PHENYLEPHRINE)NASAL SPRAY [Suspect]
     Dosage: 2 SPRAYS IN EACH NOSTRIL 5 TO 6 TIMES A DAY, NASAL
     Route: 045

REACTIONS (2)
  - DRUG ABUSER [None]
  - DRUG DEPENDENCE [None]
